FAERS Safety Report 9647328 (Version 3)
Quarter: 2013Q4

REPORT INFORMATION
  Report Type: Spontaneous
  Country: US (occurrence: US)
  Receive Date: 20131027
  Receipt Date: 20131206
  Transmission Date: 20140711
  Serious: Yes (Hospitalization, Other)
  Sender: FDA-Public Use
  Company Number: US-NAPPMUNDI-USA-2013-0107075

PATIENT
  Sex: Male

DRUGS (3)
  1. OXYCODONE HYDROCHLORIDE (SIMILAR TO NDA 22-272) [Suspect]
     Indication: LIMB INJURY
     Dosage: UNK
     Route: 065
     Dates: end: 201105
  2. OXYCODONE HYDROCHLORIDE (SIMILAR TO NDA 22-272) [Suspect]
     Indication: BACK PAIN
  3. OXYCODONE HYDROCHLORIDE (SIMILAR TO NDA 22-272) [Suspect]
     Indication: TENDON RUPTURE

REACTIONS (16)
  - Overdose [Unknown]
  - Drug dependence [Unknown]
  - Substance abuse [Unknown]
  - Drug withdrawal syndrome [Unknown]
  - Panic disorder [Unknown]
  - Post-traumatic stress disorder [Unknown]
  - Respiratory arrest [Unknown]
  - Depression [Unknown]
  - Limb injury [Unknown]
  - Aggression [Unknown]
  - Vomiting [Unknown]
  - Formication [Unknown]
  - Road traffic accident [Unknown]
  - Impaired driving ability [Unknown]
  - Intentional drug misuse [Unknown]
  - Euphoric mood [Unknown]
